FAERS Safety Report 20028452 (Version 1)
Quarter: 2021Q4

REPORT INFORMATION
  Report Type: Spontaneous
  Country: SG (occurrence: SG)
  Receive Date: 20211103
  Receipt Date: 20211103
  Transmission Date: 20220303
  Serious: Yes (Life-Threatening)
  Sender: FDA-Public Use
  Company Number: SG-JNJFOC-20211055466

PATIENT
  Sex: Female

DRUGS (1)
  1. ACETAMINOPHEN [Suspect]
     Active Substance: ACETAMINOPHEN
     Indication: Product used for unknown indication
     Route: 065

REACTIONS (5)
  - Acute hepatic failure [Unknown]
  - Drug-induced liver injury [Unknown]
  - Sepsis [Unknown]
  - Acute kidney injury [Unknown]
  - Metabolic acidosis [Unknown]
